FAERS Safety Report 23739623 (Version 2)
Quarter: 2024Q4

REPORT INFORMATION
  Report Type: Spontaneous
  Country: US (occurrence: US)
  Receive Date: 20240413
  Receipt Date: 20241209
  Transmission Date: 20250115
  Serious: Yes (Death, Other)
  Sender: AMGEN
  Company Number: US-AMGEN-USASP2024072413

PATIENT

DRUGS (2)
  1. BEVACIZUMAB [Suspect]
     Active Substance: BEVACIZUMAB
     Indication: Hepatocellular carcinoma
     Dosage: UNK
     Route: 065
  2. ATEZOLIZUMAB [Suspect]
     Active Substance: ATEZOLIZUMAB
     Indication: Hepatocellular carcinoma
     Dosage: UNK
     Route: 065

REACTIONS (12)
  - Death [Fatal]
  - Nephropathy toxic [Unknown]
  - Hepatotoxicity [Unknown]
  - Palliative care [Unknown]
  - Gastrointestinal toxicity [Unknown]
  - Skin toxicity [Unknown]
  - Toxicity to various agents [Unknown]
  - Hypertransaminasaemia [Unknown]
  - Decreased appetite [Unknown]
  - Proteinuria [Unknown]
  - Fatigue [Unknown]
  - Off label use [Unknown]
